FAERS Safety Report 18056298 (Version 2)
Quarter: 2021Q1

REPORT INFORMATION
  Report Type: Spontaneous
  Country: US (occurrence: US)
  Receive Date: 20200722
  Receipt Date: 20210205
  Transmission Date: 20210419
  Serious: Yes (Hospitalization)
  Sender: FDA-Public Use
  Company Number: US-DECIPHERA PHARMACEUTICALS LLC-2020-US-000007

PATIENT
  Age: 48 Year
  Sex: Male

DRUGS (2)
  1. QINLOCK [Suspect]
     Active Substance: RIPRETINIB
     Indication: GASTROINTESTINAL STROMAL TUMOUR
     Dosage: 150 MILLIGRAM, BID (50 MILLIGRAM, 3 TABLETS EVERY 12 HOURS)
     Route: 048
     Dates: start: 20200604
  2. QINLOCK [Suspect]
     Active Substance: RIPRETINIB
     Dosage: 150 MILLIGRAM, BID (50 MILLIGRAM, 3 TABLETS EVERY 12 HOURS)
     Route: 048
     Dates: start: 20210125

REACTIONS (3)
  - Off label use [Unknown]
  - Elective procedure [Unknown]
  - Prescribed overdose [Unknown]

NARRATIVE: CASE EVENT DATE: 20200604
